FAERS Safety Report 8413781-7 (Version None)
Quarter: 2012Q2

REPORT INFORMATION
  Report Type: 
  Country: None (occurrence: None)
  Receive Date: 20120605
  Receipt Date: 20120525
  Transmission Date: 20120825
  Serious: Yes (Hospitalization, Other)
  Sender: FDA-Public Use
  Company Number: BR-ROCHE-681832

PATIENT
  Sex: Female
  Weight: 50.7 kg

DRUGS (19)
  1. OMEPRAZOLE [Concomitant]
  2. ENALAPRIL MALEATE [Concomitant]
  3. METHOTREXATE [Suspect]
     Indication: RHEUMATOID ARTHRITIS
     Dosage: LAST DOSE PRIOR TO SAE: 28 DEC 2009, TEMPORARILY INTERRUPTED
     Route: 048
     Dates: start: 20091130, end: 20100125
  4. ACTEMRA [Suspect]
     Route: 042
  5. PRAVASTATIN [Concomitant]
     Dates: start: 20100125, end: 20100127
  6. ISONIAZID [Concomitant]
  7. METOPROLOL TARTRATE [Concomitant]
     Route: 048
     Dates: start: 20100125, end: 20100126
  8. CALCIUM CARBONATE [Concomitant]
  9. ACTEMRA [Suspect]
     Indication: RHEUMATOID ARTHRITIS
     Dosage: LAST DOSE PRIOR TO SAE: 28 DEC 2009, FREQUENCY:EVERY 4 WEEKS AS PER PROTOCOL.TEMPORARILY INTERRUPTED
     Route: 042
     Dates: start: 20091130, end: 20100125
  10. METFORMIN HCL [Concomitant]
  11. VITAMIN D [Concomitant]
  12. METOPROLOL TARTRATE [Concomitant]
  13. SIMVASTATIN [Concomitant]
  14. METHOTREXATE [Suspect]
     Route: 048
  15. CLOPIDOGREL [Concomitant]
     Route: 048
     Dates: start: 20100125, end: 20100128
  16. OMEPRAZOLE [Concomitant]
     Route: 048
  17. FOLIC ACID [Concomitant]
  18. FOLIC ACID [Concomitant]
     Dates: start: 20100125, end: 20100127
  19. ASPIRIN [Concomitant]

REACTIONS (2)
  - CARDIOMYOPATHY [None]
  - ACUTE MYOCARDIAL INFARCTION [None]
